FAERS Safety Report 4818144-9 (Version None)
Quarter: 2005Q4

REPORT INFORMATION
  Report Type: 
  Country: None (occurrence: None)
  Receive Date: 20051102
  Receipt Date: 20051031
  Transmission Date: 20060501
  Serious: Yes (Hospitalization)
  Sender: FDA-Public Use
  Company Number: US-SANOFI-SYNTHELABO-F01200502281

PATIENT
  Sex: Male

DRUGS (9)
  1. OXALIPLATIN [Suspect]
     Indication: COLON CANCER
     Route: 042
     Dates: start: 20050923, end: 20050923
  2. BEVACIZUMAB [Suspect]
     Route: 042
     Dates: start: 20050923, end: 20050923
  3. CAPECITABINE [Suspect]
     Dates: start: 20050907, end: 20050927
  4. ATENOLOL [Concomitant]
  5. CENTRUM SILVER [Concomitant]
  6. HYDROCHLOROTHIAZIDE [Concomitant]
  7. ARANESP [Concomitant]
  8. FERROUS SULFATE TAB [Concomitant]
  9. ATIVAN [Concomitant]

REACTIONS (20)
  - ASPIRATION [None]
  - ATELECTASIS [None]
  - BACTERIAL INFECTION [None]
  - BLOOD CHLORIDE DECREASED [None]
  - BLOOD GLUCOSE INCREASED [None]
  - BLOOD POTASSIUM DECREASED [None]
  - CARDIOMEGALY [None]
  - CHILLS [None]
  - COLON CANCER METASTATIC [None]
  - CONVULSION [None]
  - DIARRHOEA [None]
  - HAEMORRHAGE [None]
  - HICCUPS [None]
  - HYPONATRAEMIA [None]
  - LOSS OF CONSCIOUSNESS [None]
  - MALIGNANT NEOPLASM PROGRESSION [None]
  - METASTASIS [None]
  - PLEURAL EFFUSION [None]
  - PULMONARY CONGESTION [None]
  - SIMPLE PARTIAL SEIZURES [None]
